FAERS Safety Report 19256993 (Version 1)
Quarter: 2021Q2

REPORT INFORMATION
  Report Type: Spontaneous
  Country: US (occurrence: US)
  Receive Date: 20210514
  Receipt Date: 20210514
  Transmission Date: 20210717
  Serious: No
  Sender: FDA-Public Use
  Company Number: US-TEVA-2021-US-1903803

PATIENT
  Sex: Female

DRUGS (1)
  1. PROAIR RESPICLICK [Suspect]
     Active Substance: ALBUTEROL SULFATE
     Dosage: INHALATION ? POWDER
     Route: 055

REACTIONS (4)
  - Device delivery system issue [Unknown]
  - Device breakage [Unknown]
  - Cough [Unknown]
  - Asthma [Unknown]
